FAERS Safety Report 16004960 (Version 1)
Quarter: 2019Q1

REPORT INFORMATION
  Report Type: Spontaneous
  Country: US (occurrence: US)
  Receive Date: 20190226
  Receipt Date: 20190226
  Transmission Date: 20190418
  Serious: Yes (Other)
  Sender: FDA-Public Use
  Company Number: PHEH2019US008431

PATIENT
  Sex: Female

DRUGS (1)
  1. TASIGNA [Suspect]
     Active Substance: NILOTINIB
     Indication: CHRONIC MYELOID LEUKAEMIA
     Dosage: 150 MG, BID
     Route: 048
     Dates: start: 201012

REACTIONS (12)
  - Peripheral artery stenosis [Unknown]
  - Abdominal wall haematoma [Unknown]
  - Back pain [Unknown]
  - Hyperlipidaemia [Unknown]
  - Hypertension [Unknown]
  - Arteriosclerosis coronary artery [Unknown]
  - Peripheral arterial occlusive disease [Unknown]
  - Abscess limb [Unknown]
  - Skin ulcer [Unknown]
  - Contusion [Unknown]
  - Pain in extremity [Unknown]
  - Rhinitis allergic [Unknown]
